FAERS Safety Report 4289119-6 (Version None)
Quarter: 2004Q1

REPORT INFORMATION
  Report Type: 
  Country: None (occurrence: None)
  Receive Date: 20040206
  Receipt Date: 20040130
  Transmission Date: 20041129
  Serious: Yes (Hospitalization)
  Sender: FDA-Public Use
  Company Number: TPA2004A00119

PATIENT
  Age: 80 Year
  Sex: Female
  Weight: 50.3493 kg

DRUGS (1)
  1. ACTOS [Suspect]
     Dosage: 30 MG, 1 IN 1 D, PER ORAL
     Route: 048

REACTIONS (1)
  - EPISTAXIS [None]
